FAERS Safety Report 22021333 (Version 1)
Quarter: 2023Q1

REPORT INFORMATION
  Report Type: Spontaneous
  Country: US (occurrence: US)
  Receive Date: 20230222
  Receipt Date: 20230222
  Transmission Date: 20230418
  Serious: No
  Sender: FDA-Public Use
  Company Number: US-BAYER-2023A016292

PATIENT
  Age: 65 Year
  Sex: Female

DRUGS (4)
  1. BETASERON [Suspect]
     Active Substance: INTERFERON BETA-1B
     Indication: Relapsing-remitting multiple sclerosis
  2. DILTIAZEM [Concomitant]
     Active Substance: DILTIAZEM
  3. ROSUVASTATIN [Concomitant]
     Active Substance: ROSUVASTATIN
  4. NEURONTIN [Concomitant]
     Active Substance: GABAPENTIN

REACTIONS (1)
  - Influenza like illness [Unknown]
